FAERS Safety Report 9897876 (Version 1)
Quarter: 2014Q1

REPORT INFORMATION
  Report Type: Spontaneous
  Country: US (occurrence: US)
  Receive Date: 20140214
  Receipt Date: 20140214
  Transmission Date: 20141002
  Serious: No
  Sender: FDA-Public Use
  Company Number: US-PFIZER INC-2014041511

PATIENT
  Sex: Male

DRUGS (1)
  1. LYRICA [Suspect]
     Indication: PHANTOM PAIN
     Dosage: 300 MG, 2X/DAY

REACTIONS (3)
  - Off label use [Unknown]
  - Confusional state [Unknown]
  - Mood swings [Unknown]
